FAERS Safety Report 5469349-8 (Version None)
Quarter: 2007Q3

REPORT INFORMATION
  Report Type: 
  Country: None (occurrence: None)
  Receive Date: 20070927
  Receipt Date: 20070926
  Transmission Date: 20080115
  Serious: Yes (Hospitalization)
  Sender: FDA-Public Use
  Company Number: US-JNJFOC-20070903628

PATIENT
  Sex: Female
  Weight: 70.31 kg

DRUGS (4)
  1. TOPAMAX [Suspect]
     Route: 048
  2. TOPAMAX [Suspect]
     Indication: DRUG THERAPY
     Route: 048
  3. PROZAC [Concomitant]
     Indication: DEPRESSION
     Route: 048
  4. PAIN MEDICATION [Concomitant]
     Indication: PAIN

REACTIONS (7)
  - AGITATION [None]
  - DRUG EXPOSURE DURING PREGNANCY [None]
  - ECTOPIC PREGNANCY [None]
  - NERVOUSNESS [None]
  - PARAESTHESIA [None]
  - WEIGHT DECREASED [None]
  - WEIGHT INCREASED [None]
